FAERS Safety Report 8875870 (Version 1)
Quarter: 2012Q4

REPORT INFORMATION
  Report Type: 
  Country: US (occurrence: US)
  Receive Date: 20121023
  Receipt Date: 20121023
  Transmission Date: 20130627
  Serious: Yes (Other)
  Sender: FDA-Public Use
  Company Number: US-GLAXOSMITHKLINE-A0991526A

PATIENT
  Age: 39 Year
  Sex: Female
  Weight: 145.28 kg

DRUGS (20)
  1. BENLYSTA [Suspect]
     Indication: SYSTEMIC LUPUS ERYTHEMATOSUS
     Route: 042
     Dates: start: 20120813
  2. ZYRTEC [Concomitant]
  3. BENADRYL [Concomitant]
     Indication: PREMEDICATION
     Dosage: 25MG Per day
  4. OMEPRAZOLE [Concomitant]
     Dosage: 20.6MG Per day
  5. POTASSIUM [Concomitant]
     Dosage: 20MEQ Per day
  6. FUROSEMIDE [Concomitant]
     Dosage: 20MG Per day
  7. VITAMIN D [Concomitant]
     Dosage: 5000IU Per day
  8. PLAQUENIL [Concomitant]
     Dosage: 200MG Per day
  9. PREDNISONE [Concomitant]
     Dosage: 5MG Per day
  10. PREDNISONE [Concomitant]
     Dosage: 2MG Per day
  11. IBUPROFEN [Concomitant]
     Dosage: 400MG Per day
  12. TRAMADOL [Concomitant]
  13. SINGULAIR [Concomitant]
     Dosage: 10MG Per day
  14. ADVAIR [Concomitant]
  15. LEVOTHYROXINE [Concomitant]
     Dosage: 50MCG Per day
  16. CELLCEPT [Concomitant]
     Dosage: 1500MG Per day
  17. TYLENOL [Concomitant]
     Indication: PREMEDICATION
  18. ALBUTEROL [Concomitant]
  19. PSEUDOEPHEDRINE [Concomitant]
  20. DEMADEX [Concomitant]

REACTIONS (8)
  - Systemic lupus erythematosus [Recovered/Resolved]
  - Fatigue [Recovering/Resolving]
  - Sedation [Recovered/Resolved]
  - Migraine [Recovering/Resolving]
  - Nausea [Recovering/Resolving]
  - Photophobia [Recovering/Resolving]
  - Ill-defined disorder [Recovering/Resolving]
  - Headache [Recovering/Resolving]
